FAERS Safety Report 4273856-3 (Version None)
Quarter: 2004Q1

REPORT INFORMATION
  Report Type: 
  Country: None (occurrence: None)
  Receive Date: 20040115
  Receipt Date: 20031128
  Transmission Date: 20041129
  Serious: Yes (Death)
  Sender: FDA-Public Use
  Company Number: USA-2003-0011254

PATIENT
  Age: 63 Year
  Sex: Male

DRUGS (1)
  1. OXYCONTIN [Suspect]
     Indication: CANCER PAIN
     Dosage: 40 MG, Q12H

REACTIONS (2)
  - MALIGNANT NEOPLASM PROGRESSION [None]
  - OESOPHAGEAL CARCINOMA [None]
